FAERS Safety Report 4843613-5 (Version None)
Quarter: 2005Q4

REPORT INFORMATION
  Report Type: 
  Country: None (occurrence: None)
  Receive Date: 20051125
  Receipt Date: 20051109
  Transmission Date: 20060501
  Serious: Yes (Other)
  Sender: FDA-Public Use
  Company Number: US200511000062

PATIENT
  Age: 62 Year
  Sex: Female

DRUGS (2)
  1. HUMULIN R [Suspect]
  2. HUMULIN N [Suspect]

REACTIONS (3)
  - ASTHMA [None]
  - COUGH [None]
  - LATEX ALLERGY [None]
